FAERS Safety Report 7788658-0 (Version None)
Quarter: 2011Q3

REPORT INFORMATION
  Report Type: 
  Country: None (occurrence: None)
  Receive Date: 20110928
  Receipt Date: 20110920
  Transmission Date: 20111222
  Serious: Yes (Other)
  Sender: FDA-Public Use
  Company Number: GER/UKI/11/021257

PATIENT
  Age: 34 Year
  Sex: Male

DRUGS (1)
  1. CETIRIZINE [Suspect]
     Indication: SEASONAL ALLERGY

REACTIONS (3)
  - DYSPNOEA [None]
  - COUGH [None]
  - FATIGUE [None]
